FAERS Safety Report 6827368-0 (Version None)
Quarter: 2010Q3

REPORT INFORMATION
  Report Type: 
  Country: None (occurrence: None)
  Receive Date: 20100709
  Receipt Date: 20070109
  Transmission Date: 20110219
  Serious: No
  Sender: FDA-Public Use
  Company Number: US-PFIZER INC-2007003807

PATIENT
  Sex: Male
  Weight: 73.48 kg

DRUGS (5)
  1. CHANTIX [Suspect]
     Indication: SMOKING CESSATION THERAPY
     Route: 048
     Dates: start: 20070107
  2. LEXAPRO [Concomitant]
     Indication: DEPRESSION
  3. INSULIN [Concomitant]
     Indication: TYPE 2 DIABETES MELLITUS
  4. METHADONE [Concomitant]
     Indication: BACK INJURY
  5. WELLBUTRIN XL [Concomitant]

REACTIONS (2)
  - BLOOD GLUCOSE INCREASED [None]
  - DEPRESSION [None]
